FAERS Safety Report 24648664 (Version 1)
Quarter: 2024Q4

REPORT INFORMATION
  Report Type: Spontaneous
  Country: SK (occurrence: SK)
  Receive Date: 20241121
  Receipt Date: 20241121
  Transmission Date: 20250115
  Serious: Yes (Other)
  Sender: INSUD PHARMA
  Company Number: SK-EXELTIS PHARMACEUTICAL HOLDING, S.L.-2411SK08639

PATIENT
  Age: 35 Year
  Sex: Female

DRUGS (1)
  1. SLYND [Suspect]
     Active Substance: DROSPIRENONE
     Indication: Contraception
     Dosage: UNK
     Route: 065
     Dates: start: 202209

REACTIONS (3)
  - Pregnancy on oral contraceptive [Recovered/Resolved]
  - Drug ineffective [Unknown]
  - Abortion missed [Unknown]

NARRATIVE: CASE EVENT DATE: 20240801
